FAERS Safety Report 9741333 (Version 1)
Quarter: 2013Q4

REPORT INFORMATION
  Report Type: Spontaneous
  Country: US (occurrence: US)
  Receive Date: 20131209
  Receipt Date: 20131209
  Transmission Date: 20140711
  Serious: Yes (Hospitalization)
  Sender: FDA-Public Use
  Company Number: US-FRI-1000051941

PATIENT
  Age: 85 Year
  Sex: Female

DRUGS (6)
  1. TUDORZA PRESSAIR [Suspect]
     Indication: CHRONIC OBSTRUCTIVE PULMONARY DISEASE
     Dosage: 800MCG
     Route: 055
  2. TUDORZA PRESSAIR [Suspect]
     Indication: EMPHYSEMA
  3. TUDORZA PRESSAIR [Suspect]
     Indication: BRONCHITIS CHRONIC
  4. DALIRESP [Suspect]
     Indication: CHRONIC OBSTRUCTIVE PULMONARY DISEASE
     Dosage: 500MCG
     Route: 048
  5. DALIRESP [Suspect]
     Indication: EMPHYSEMA
  6. DALIRESP [Suspect]
     Indication: BRONCHITIS CHRONIC

REACTIONS (1)
  - Convulsion [Unknown]
